FAERS Safety Report 16411400 (Version 1)
Quarter: 2019Q2

REPORT INFORMATION
  Report Type: Report from Study
  Country: None (occurrence: PR)
  Receive Date: 20190610
  Receipt Date: 20190610
  Transmission Date: 20190711
  Serious: Yes (Hospitalization)
  Sender: FDA-Public Use
  Company Number: PR-ABBVIE-19K-131-2810129-00

PATIENT
  Age: 53 Year
  Sex: Male
  Weight: 114.86 kg

DRUGS (1)
  1. HUMIRA [Suspect]
     Active Substance: ADALIMUMAB
     Indication: RHEUMATOID ARTHRITIS
     Route: 058
     Dates: start: 20180102

REACTIONS (2)
  - Dermatitis allergic [Recovering/Resolving]
  - Pruritus allergic [Recovering/Resolving]

NARRATIVE: CASE EVENT DATE: 20190530
